FAERS Safety Report 24684044 (Version 1)
Quarter: 2024Q4

REPORT INFORMATION
  Report Type: Spontaneous
  Country: US (occurrence: US)
  Receive Date: 20241202
  Receipt Date: 20241202
  Transmission Date: 20250115
  Serious: Yes (Other)
  Sender: BRISTOL-MYERS SQUIBB COMPANY
  Company Number: US-BRISTOL-MYERS SQUIBB COMPANY-2024-180717

PATIENT
  Age: 70 Year
  Sex: Male
  Weight: 80.3 kg

DRUGS (1)
  1. REVLIMID [Suspect]
     Active Substance: LENALIDOMIDE
     Indication: Plasma cell myeloma
     Dosage: FREQUENCY: 10 MG, 1 CAPSULE EVERY DAY FOR A 28-DAY CYCLE
     Route: 048
     Dates: start: 20220523

REACTIONS (1)
  - Pneumonia [Unknown]
